FAERS Safety Report 4879671-1 (Version None)
Quarter: 2006Q1

REPORT INFORMATION
  Report Type: 
  Country: None (occurrence: None)
  Receive Date: 20060111
  Receipt Date: 20060104
  Transmission Date: 20060701
  Serious: Yes (Hospitalization, Other)
  Sender: FDA-Public Use
  Company Number: 2005-11-1060

PATIENT
  Age: 50 Year
  Sex: Male
  Weight: 86.1834 kg

DRUGS (16)
  1. PEG-INTRON [Suspect]
     Indication: HEPATITIS C
     Dosage: 150 MCG QWK SUBCUTANEOUS
     Route: 058
     Dates: start: 20050926
  2. REBETOL [Suspect]
     Indication: HEPATITIS C
     Dosage: 1200-800 MG/D ORAL
     Route: 048
     Dates: start: 20050926
  3. ACTOS (PIOGLITAZONE HCL) TABLETS [Concomitant]
  4. AMITRIPTYLINE HCL [Concomitant]
  5. ASPIRIN [Concomitant]
  6. ATENOLOL [Concomitant]
  7. GEMFIBROZIL [Concomitant]
  8. METFORMIN HCL [Concomitant]
  9. MILK THISTLE FRUIT CAPSULES [Concomitant]
  10. OXYCONTIN (OXYCODONE HCL) TABLETS [Concomitant]
  11. QUINAPRIL HYDROCHLORIDE TABLETS [Concomitant]
  12. IBUPROFEN [Concomitant]
  13. HYDROCHLOROTHIAZIDE [Concomitant]
  14. LACTULOSE [Concomitant]
  15. REGLAN [Concomitant]
  16. DECADRON [Concomitant]

REACTIONS (27)
  - AMNESIA [None]
  - ANOREXIA [None]
  - ANXIETY [None]
  - BACK PAIN [None]
  - BLOOD GLUCOSE DECREASED [None]
  - DIARRHOEA [None]
  - DRUG HYPERSENSITIVITY [None]
  - DRY SKIN [None]
  - FATIGUE [None]
  - HAEMATOCRIT DECREASED [None]
  - HAEMOGLOBIN DECREASED [None]
  - HEADACHE [None]
  - HEART RATE INCREASED [None]
  - HEPATIC ENCEPHALOPATHY [None]
  - MYALGIA [None]
  - NAUSEA [None]
  - PAIN [None]
  - PANCREATIC DISORDER [None]
  - PHOTOPHOBIA [None]
  - PLATELET COUNT DECREASED [None]
  - POST PROCEDURAL COMPLICATION [None]
  - SOMNOLENCE [None]
  - THIRST [None]
  - URINE KETONE BODY PRESENT [None]
  - VOMITING [None]
  - WEIGHT DECREASED [None]
  - WHITE BLOOD CELL COUNT DECREASED [None]
